FAERS Safety Report 6800849-1 (Version None)
Quarter: 2010Q2

REPORT INFORMATION
  Report Type: 
  Country: None (occurrence: None)
  Receive Date: 20100629
  Receipt Date: 20100618
  Transmission Date: 20101027
  Serious: Yes (Other)
  Sender: FDA-Public Use
  Company Number: US-JNJFOC-20100507277

PATIENT
  Sex: Female
  Weight: 63.5 kg

DRUGS (7)
  1. REMICADE [Suspect]
     Indication: COLITIS ULCERATIVE
     Route: 042
  2. REMICADE [Suspect]
     Route: 042
  3. UNSPECIFIED MEDICATION FOR HYPOTHYROIDISM [Concomitant]
     Indication: HYPOTHYROIDISM
  4. ALL OTHER THERAPEUTIC PRODUCTS [Concomitant]
     Indication: DYSPEPSIA
  5. VITAMIN TAB [Concomitant]
     Indication: VITAMIN SUPPLEMENTATION
  6. BENADRYL [Concomitant]
     Indication: PREMEDICATION
  7. TYLENOL [Concomitant]
     Indication: PREMEDICATION

REACTIONS (7)
  - ARTHRALGIA [None]
  - DYSPNOEA [None]
  - FLUSHING [None]
  - HEART RATE INCREASED [None]
  - INFUSION RELATED REACTION [None]
  - LIVER FUNCTION TEST ABNORMAL [None]
  - TREMOR [None]
